FAERS Safety Report 5171138-9 (Version None)
Quarter: 2006Q4

REPORT INFORMATION
  Report Type: 
  Country: None (occurrence: None)
  Receive Date: 20061213
  Receipt Date: 20061130
  Transmission Date: 20070319
  Serious: Yes (Other)
  Sender: FDA-Public Use
  Company Number: CH-BRISTOL-MYERS SQUIBB COMPANY-13604897

PATIENT
  Sex: Male

DRUGS (6)
  1. HOLOXAN [Suspect]
     Indication: BONE NEOPLASM MALIGNANT
     Route: 064
     Dates: start: 20060215, end: 20060425
  2. UROMITEXAN [Suspect]
     Indication: BONE NEOPLASM MALIGNANT
     Route: 064
     Dates: start: 20060215, end: 20060426
  3. ADRIBLASTIN [Suspect]
     Indication: BONE NEOPLASM MALIGNANT
     Route: 064
     Dates: start: 20060215, end: 20060421
  4. ZOFRAN [Suspect]
     Indication: BONE NEOPLASM MALIGNANT
     Route: 064
     Dates: start: 20060215, end: 20060426
  5. METHYLPREDNISOLONE SODIUM SUCCINATE [Suspect]
     Indication: BONE NEOPLASM MALIGNANT
     Route: 064
     Dates: start: 20060215
  6. GRANULOCYTE CSF [Concomitant]
     Route: 064
     Dates: start: 20060222, end: 20060505

REACTIONS (2)
  - GROWTH RETARDATION [None]
  - PREGNANCY [None]
